FAERS Safety Report 23484915 (Version 1)
Quarter: 2024Q1

REPORT INFORMATION
  Report Type: Report from Study
  Country: US (occurrence: US)
  Receive Date: 20240206
  Receipt Date: 20240206
  Transmission Date: 20240410
  Serious: Yes (Hospitalization)
  Sender: FDA-Public Use
  Company Number: US-GILEAD-2024-0660663

PATIENT
  Sex: Female

DRUGS (18)
  1. AZTREONAM LYSINE [Suspect]
     Active Substance: AZTREONAM LYSINE
     Indication: Cystic fibrosis lung
     Dosage: 75 MG, TID AT 8 A.M., 2 P.M. AND 10 P.M., EVERY OTHER MONTH
     Route: 055
  2. TRIKAFTA [Concomitant]
     Active Substance: ELEXACAFTOR\IVACAFTOR\TEZACAFTOR
  3. PULMOZYME [Concomitant]
     Active Substance: DORNASE ALFA
  4. ZYPREXA [Concomitant]
     Active Substance: OLANZAPINE
  5. CREON [Concomitant]
     Active Substance: PANCRELIPASE AMYLASE\PANCRELIPASE LIPASE\PANCRELIPASE PROTEASE
  6. ZOLOFT [Concomitant]
     Active Substance: SERTRALINE HYDROCHLORIDE
  7. DEPAKOTE [Concomitant]
     Active Substance: DIVALPROEX SODIUM
  8. GABAPENTIN [Concomitant]
     Active Substance: GABAPENTIN
  9. OMEPRAZOLE [Concomitant]
     Active Substance: OMEPRAZOLE
  10. VITAMIN D3 [Concomitant]
     Active Substance: CHOLECALCIFEROL
  11. CLONAZEPAM [Concomitant]
     Active Substance: CLONAZEPAM
  12. MELATON [MELATONIN] [Concomitant]
  13. KEPPRA [Concomitant]
     Active Substance: LEVETIRACETAM
  14. CRYSELLE [Concomitant]
     Active Substance: ETHINYL ESTRADIOL\NORGESTREL
  15. AZITHROMYCIN [Concomitant]
     Active Substance: AZITHROMYCIN
  16. ALBUTEROL SULFATE [Concomitant]
     Active Substance: ALBUTEROL SULFATE
  17. LAMICTAL [Concomitant]
     Active Substance: LAMOTRIGINE
  18. LANTUS [Concomitant]
     Active Substance: INSULIN GLARGINE

REACTIONS (1)
  - Influenza [Recovering/Resolving]
